FAERS Safety Report 20328231 (Version 1)
Quarter: 2022Q1

REPORT INFORMATION
  Report Type: Spontaneous
  Country: FR (occurrence: FR)
  Receive Date: 20220112
  Receipt Date: 20220112
  Transmission Date: 20220423
  Serious: Yes (Hospitalization)
  Sender: FDA-Public Use
  Company Number: None

PATIENT
  Age: 67 Year
  Sex: Female
  Weight: 68 kg

DRUGS (7)
  1. RABEPRAZOLE [Suspect]
     Active Substance: RABEPRAZOLE
     Indication: Prophylaxis
     Route: 048
     Dates: start: 20210709, end: 20210719
  2. BILASTINE [Suspect]
     Active Substance: BILASTINE
     Indication: Prophylaxis
     Dates: start: 20210709, end: 20210719
  3. BECLOMETHASONE [Suspect]
     Active Substance: BECLOMETHASONE
     Indication: Respiratory tract infection
     Route: 045
     Dates: start: 20210709, end: 20210719
  4. AUGMENTIN [Suspect]
     Active Substance: AMOXICILLIN\CLAVULANATE POTASSIUM
     Indication: Respiratory tract infection
     Route: 048
     Dates: start: 20210709, end: 20210716
  5. SOLUPRED [Concomitant]
     Indication: Respiratory tract infection
     Route: 065
     Dates: start: 20210709, end: 20210716
  6. DICLOFENAC [Concomitant]
     Active Substance: DICLOFENAC
     Indication: Neck pain
     Route: 065
     Dates: start: 20210621, end: 20210625
  7. THIOCOLCHICOSIDE [Concomitant]
     Active Substance: THIOCOLCHICOSIDE
     Indication: Neck pain
     Route: 065
     Dates: start: 20210621, end: 20210625

REACTIONS (1)
  - Rash maculo-papular [Recovered/Resolved]

NARRATIVE: CASE EVENT DATE: 20210718
